FAERS Safety Report 16668959 (Version 1)
Quarter: 2019Q3

REPORT INFORMATION
  Report Type: Spontaneous
  Country: US (occurrence: US)
  Receive Date: 20190620
  Receipt Date: 20190620
  Transmission Date: 20191004
  Serious: No
  Sender: FDA-Public Use
  Company Number: None

PATIENT
  Sex: Female

DRUGS (1)
  1. CEFTRIAXONE SODIUM. [Suspect]
     Active Substance: CEFTRIAXONE SODIUM
     Indication: STREPTOCOCCAL INFECTION
     Dosage: ?          OTHER ROUTE:IV?
     Dates: start: 20190524, end: 20190617

REACTIONS (3)
  - Lip swelling [None]
  - Paraesthesia [None]
  - Rash generalised [None]
